FAERS Safety Report 21439830 (Version 2)
Quarter: 2022Q4

REPORT INFORMATION
  Report Type: Other
  Country: US (occurrence: US)
  Receive Date: 20221011
  Receipt Date: 20221222
  Transmission Date: 20230113
  Serious: Yes (Hospitalization, Other)
  Sender: FDA-Public Use
  Company Number: US-Covis Pharma GmbH-2022COV21969

PATIENT
  Age: 0 Year
  Sex: Female

DRUGS (1)
  1. MAKENA [Suspect]
     Active Substance: HYDROXYPROGESTERONE CAPROATE
     Indication: Foetal exposure during pregnancy
     Route: 064
     Dates: start: 20220606, end: 20220919

REACTIONS (2)
  - Nonreassuring foetal heart rate pattern [Unknown]
  - Premature baby [Unknown]

NARRATIVE: CASE EVENT DATE: 20220928
